FAERS Safety Report 8591055-1 (Version None)
Quarter: 2012Q3

REPORT INFORMATION
  Report Type: 
  Country: None (occurrence: None)
  Receive Date: 20120813
  Receipt Date: 20120803
  Transmission Date: 20120928
  Serious: Yes (Hospitalization, Disabling)
  Sender: FDA-Public Use
  Company Number: US-JNJFOC-20120313742

PATIENT
  Sex: Female
  Weight: 72.58 kg

DRUGS (3)
  1. STELARA [Suspect]
     Indication: PSORIASIS
     Route: 058
     Dates: start: 20110901, end: 20120301
  2. ANTIBIOTICS [Suspect]
     Indication: CYSTITIS
     Route: 065
  3. STELARA [Suspect]
     Indication: PSORIATIC ARTHROPATHY
     Route: 058
     Dates: start: 20110901, end: 20120301

REACTIONS (3)
  - CYSTITIS [None]
  - LYMPHADENOPATHY [None]
  - HEADACHE [None]
